FAERS Safety Report 4721679-0 (Version None)
Quarter: 2005Q3

REPORT INFORMATION
  Report Type: 
  Country: None (occurrence: None)
  Receive Date: 20050721
  Receipt Date: 20050217
  Transmission Date: 20060218
  Serious: Yes (Hospitalization, Other)
  Sender: FDA-Public Use
  Company Number: US-BRISTOL-MYERS SQUIBB COMPANY-12867545

PATIENT
  Age: 88 Year
  Sex: Male

DRUGS (2)
  1. COUMADIN [Suspect]
     Dosage: 3 MG ALTERNATING WITH 4 MG DAILY
  2. FLOMAX [Suspect]
     Dosage: .8MG/D DECREASED TO .4MG/D IN 04;INCREASED TO .8MG IN DEC-04;DECREASED TO .4MG/D,INCREASED TO .8MG/D

REACTIONS (5)
  - ARTHRALGIA [None]
  - DYSURIA [None]
  - HAEMARTHROSIS [None]
  - INTERNATIONAL NORMALISED RATIO INCREASED [None]
  - POLLAKIURIA [None]
